FAERS Safety Report 6010895-6 (Version None)
Quarter: 2008Q4

REPORT INFORMATION
  Report Type: 
  Country: None (occurrence: None)
  Receive Date: 20081216
  Receipt Date: 20081210
  Transmission Date: 20090506
  Serious: Yes (Hospitalization)
  Sender: FDA-Public Use
  Company Number: US023163

PATIENT
  Age: 47 Year
  Sex: Female
  Weight: 85 kg

DRUGS (12)
  1. BENDAMUSTINE HCL [Suspect]
     Indication: NON-HODGKIN'S LYMPHOMA
     Dosage: 50 MG/M2 INTRAVENOUS
     Route: 042
     Dates: start: 20080216, end: 20080218
  2. VELCADE [Suspect]
     Indication: NON-HODGKIN'S LYMPHOMA
     Dosage: 1.6 MG/M2 INTRAVENOUS
     Route: 042
     Dates: start: 20080218, end: 20080310
  3. RITUXIMAB [Concomitant]
  4. RHINOCORT /00614601/ [Concomitant]
  5. ALLEGRA /01314201/ [Concomitant]
  6. ALBUTEROL [Concomitant]
  7. FLOVENT [Concomitant]
  8. MAXZIDE [Concomitant]
  9. COUMADIN [Concomitant]
  10. VANCOMYCIN [Concomitant]
  11. ZOSYN [Concomitant]
  12. FLAGYL [Concomitant]

REACTIONS (19)
  - BLOOD ALBUMIN DECREASED [None]
  - BLOOD ALKALINE PHOSPHATASE INCREASED [None]
  - BLOOD MAGNESIUM DECREASED [None]
  - CONFUSIONAL STATE [None]
  - DEHYDRATION [None]
  - DIARRHOEA [None]
  - DYSPNOEA [None]
  - EPISTAXIS [None]
  - HEPATOMEGALY [None]
  - HYPERCALCAEMIA [None]
  - HYPOCALCAEMIA [None]
  - LUNG DISORDER [None]
  - NAUSEA [None]
  - PLEURAL EFFUSION [None]
  - PRODUCTIVE COUGH [None]
  - PYREXIA [None]
  - SPUTUM DISCOLOURED [None]
  - THROMBOCYTOPENIA [None]
  - VOMITING [None]
